FAERS Safety Report 7258551-0 (Version None)
Quarter: 2011Q1

REPORT INFORMATION
  Report Type: 
  Country: None (occurrence: None)
  Receive Date: 20110129
  Receipt Date: 20100505
  Transmission Date: 20110831
  Serious: No
  Sender: FDA-Public Use
  Company Number: US-ABBOTT-10P-163-0642935-00

PATIENT
  Sex: Female

DRUGS (5)
  1. RELAFEN [Concomitant]
     Indication: ARTHRALGIA
  2. FLEXERIL [Concomitant]
     Indication: MYALGIA
  3. METHOTREXATE [Concomitant]
     Indication: RHEUMATOID ARTHRITIS
     Route: 048
  4. FLEXERIL [Concomitant]
     Indication: FIBROMYALGIA
  5. HUMIRA [Suspect]
     Indication: RHEUMATOID ARTHRITIS
     Dates: start: 20080101

REACTIONS (1)
  - INJECTION SITE PAIN [None]
